FAERS Safety Report 5025713-2 (Version None)
Quarter: 2006Q2

REPORT INFORMATION
  Report Type: 
  Country: None (occurrence: None)
  Receive Date: 20060427
  Receipt Date: 20050711
  Transmission Date: 20061013
  Serious: Yes (Other)
  Sender: FDA-Public Use
  Company Number: 2005099412

PATIENT
  Age: 18 Year
  Sex: Male
  Weight: 92.0802 kg

DRUGS (3)
  1. ZITHROMAX [Suspect]
     Indication: ILL-DEFINED DISORDER
     Dosage: 250 MG (250 MG, DAILY), ORAL
     Route: 048
     Dates: start: 20050705, end: 20050709
  2. PSEUDOEPHEDRINE HCL W/GUAIFENESIN (GUAIFENESIN, PSEUDOEPHEDRINE HYDROC [Concomitant]
  3. MUCINEX (GUAIFENESIN) [Concomitant]

REACTIONS (2)
  - CERUMEN IMPACTION [None]
  - DEAFNESS [None]
